FAERS Safety Report 4802312-6 (Version None)
Quarter: 2005Q4

REPORT INFORMATION
  Report Type: 
  Country: None (occurrence: None)
  Receive Date: 20051012
  Receipt Date: 20050929
  Transmission Date: 20060501
  Serious: Yes (Hospitalization, Other)
  Sender: FDA-Public Use
  Company Number: HQWYE804203OCT05

PATIENT
  Age: 63 Year
  Sex: Male

DRUGS (2)
  1. ROFERON [Suspect]
     Indication: RENAL CELL CARCINOMA STAGE UNSPECIFIED
     Dosage: 18 MU 3 TIMES A WK, SC
     Route: 058
     Dates: start: 20040505
  2. TEMSIROLIMUS [Concomitant]

REACTIONS (2)
  - DISEASE PROGRESSION [None]
  - HEPATIC STEATOSIS [None]
